FAERS Safety Report 6875066-X (Version None)
Quarter: 2010Q3

REPORT INFORMATION
  Report Type: 
  Country: None (occurrence: None)
  Receive Date: 20100727
  Receipt Date: 20100507
  Transmission Date: 20110219
  Serious: No
  Sender: FDA-Public Use
  Company Number: US-MYLANLABS-2010S1008334

PATIENT
  Age: 68 Year
  Sex: Male

DRUGS (8)
  1. LEVOTHYROXINE SODIUM [Suspect]
  2. LORATADINE [Suspect]
  3. METFORMIN HCL [Suspect]
  4. LISINOPRIL AND HYDROCHLOROTHIAZIDE [Suspect]
  5. ATENOLOL [Suspect]
  6. LOVASTATIN [Suspect]
  7. AMLODIPINE [Suspect]
  8. GLIPIZIDE [Suspect]

REACTIONS (1)
  - BLOOD GLUCOSE INCREASED [None]
